FAERS Safety Report 25327737 (Version 2)
Quarter: 2025Q3

REPORT INFORMATION
  Report Type: Spontaneous
  Country: US (occurrence: US)
  Receive Date: 20250517
  Receipt Date: 20250812
  Transmission Date: 20251021
  Serious: No
  Sender: SANOFI AVENTIS
  Company Number: US-SA-2025SA140726

PATIENT
  Age: 22 Year
  Sex: Male

DRUGS (1)
  1. DUPIXENT [Suspect]
     Active Substance: DUPILUMAB
     Indication: Asthma
     Dosage: 300 MG, QOW
     Route: 058
     Dates: start: 20250507

REACTIONS (2)
  - Nasopharyngitis [Recovering/Resolving]
  - Incorrect dose administered [Unknown]

NARRATIVE: CASE EVENT DATE: 20250101
